FAERS Safety Report 4323179-9 (Version None)
Quarter: 2004Q1

REPORT INFORMATION
  Report Type: 
  Country: None (occurrence: None)
  Receive Date: 20040322
  Receipt Date: 20040310
  Transmission Date: 20041129
  Serious: Yes (Other)
  Sender: FDA-Public Use
  Company Number: 2004016432

PATIENT
  Age: 68 Year
  Sex: Female
  Weight: 58.514 kg

DRUGS (3)
  1. ZITHROMAX [Suspect]
     Indication: BRONCHITIS
     Dates: start: 20031201, end: 20031230
  2. OXYBUTYNIN [Suspect]
     Indication: HYPERTONIC BLADDER
     Dosage: 3.9 MG (BIW), TRANSDERMAL
     Route: 062
     Dates: start: 20031216, end: 20031230
  3. PROMETHAZINE [Suspect]
     Indication: BRONCHITIS
     Dates: start: 20031201, end: 20031230

REACTIONS (2)
  - BURNING SENSATION [None]
  - HYPERSENSITIVITY [None]
